FAERS Safety Report 9432867 (Version 1)
Quarter: 2013Q3

REPORT INFORMATION
  Report Type: Spontaneous
  Country: ES (occurrence: None)
  Receive Date: 20130729
  Receipt Date: 20130729
  Transmission Date: 20140515
  Serious: Yes (Hospitalization, Other)
  Sender: FDA-Public Use
  Company Number: VAL_02659_2013

PATIENT
  Age: 61 Year
  Sex: Male

DRUGS (7)
  1. LOPRESSOR [Suspect]
     Indication: ISCHAEMIC CARDIOMYOPATHY
     Route: 048
     Dates: end: 20110201
  2. LOPRESSOR [Suspect]
     Indication: OFF LABEL USE
     Route: 048
     Dates: end: 20110201
  3. HYDROCHLOROTHIAZIDE [Suspect]
     Indication: PROPHYLAXIS
     Route: 048
  4. VASERETIC [Suspect]
     Indication: HYPERTENSION
     Route: 048
     Dates: start: 20100506, end: 20110201
  5. SIMVASTATIN [Concomitant]
  6. ADIRO [Concomitant]
  7. NOLOTIL [Concomitant]

REACTIONS (2)
  - Renal failure acute [None]
  - Blood potassium decreased [None]
